FAERS Safety Report 7654623-7 (Version None)
Quarter: 2011Q3

REPORT INFORMATION
  Report Type: 
  Country: None (occurrence: None)
  Receive Date: 20110803
  Receipt Date: 20110721
  Transmission Date: 20111222
  Serious: Yes (Other)
  Sender: FDA-Public Use
  Company Number: NL-MYLANLABS-2011S1015202

PATIENT
  Age: 43 Year
  Sex: Female
  Weight: 65 kg

DRUGS (3)
  1. OMEPRAZOLE [Suspect]
     Indication: DYSPHAGIA
     Dosage: 1 DD 1
     Route: 048
     Dates: start: 20110503, end: 20110629
  2. PENTASA [Suspect]
     Indication: COLITIS ULCERATIVE
     Dosage: 2 DD 1 SACHET
     Route: 048
     Dates: start: 20110301, end: 20110629
  3. NORDETTE-28 [Concomitant]
     Indication: PRODUCT USED FOR UNKNOWN INDICATION
     Dosage: VOLGENS CYCLUS
     Route: 048

REACTIONS (4)
  - PAROTITIS [None]
  - URTICARIA [None]
  - THERAPEUTIC RESPONSE UNEXPECTED WITH DRUG SUBSTITUTION [None]
  - ANGIOEDEMA [None]
